FAERS Safety Report 7305951-6 (Version None)
Quarter: 2011Q1

REPORT INFORMATION
  Report Type: 
  Country: None (occurrence: None)
  Receive Date: 20110209
  Receipt Date: 20110124
  Transmission Date: 20110831
  Serious: Yes (Death)
  Sender: FDA-Public Use
  Company Number: 2011S1000084

PATIENT
  Age: 56 Year
  Sex: Female

DRUGS (11)
  1. TRAMADOL [Suspect]
     Dosage: PO
     Route: 048
     Dates: end: 20090101
  2. PROMETHAZINE [Suspect]
     Dosage: PO
     Route: 048
     Dates: end: 20090101
  3. OXYCONTIN [Suspect]
     Dosage: PO
     Route: 048
     Dates: end: 20090101
  4. CLONAZEPAM [Suspect]
     Dates: end: 20090101
  5. ETHANOL [Suspect]
     Dates: end: 20090101
  6. METFORMIN [Suspect]
     Dates: end: 20090101
  7. VENLAFAXINE HCL EXTENDED-RELEASE [Suspect]
     Dosage: PO
     Route: 048
     Dates: end: 20090101
  8. MELOXICAM [Suspect]
     Dates: end: 20090101
  9. SIMVASTATIN [Suspect]
     Dates: end: 20090101
  10. OXYCODONE [Suspect]
     Dosage: PO
     Route: 048
     Dates: end: 20090101
  11. LISINOPRIL [Suspect]
     Dates: end: 20090101

REACTIONS (1)
  - MULTIPLE DRUG OVERDOSE INTENTIONAL [None]
